FAERS Safety Report 25515157 (Version 1)
Quarter: 2025Q3

REPORT INFORMATION
  Report Type: Report from Study
  Country: CN (occurrence: CN)
  Receive Date: 20250703
  Receipt Date: 20250703
  Transmission Date: 20251021
  Serious: Yes (Hospitalization, Other)
  Sender: RANBAXY
  Company Number: CN-SUN PHARMACEUTICAL INDUSTRIES LTD-2025R1-514088

PATIENT
  Age: 73 Year
  Sex: Male
  Weight: 43 kg

DRUGS (9)
  1. OXALIPLATIN [Concomitant]
     Active Substance: OXALIPLATIN
     Indication: Adenocarcinoma gastric
     Route: 042
     Dates: start: 20230526, end: 20230617
  2. OXALIPLATIN [Concomitant]
     Active Substance: OXALIPLATIN
     Route: 042
     Dates: start: 20230621
  3. CAPECITABINE [Suspect]
     Active Substance: CAPECITABINE
     Indication: Adenocarcinoma gastric
     Dosage: 1.5 MILLIGRAM, BID
     Route: 048
     Dates: start: 20230526, end: 20230615
  4. CAPECITABINE [Suspect]
     Active Substance: CAPECITABINE
     Dosage: 1.5 MILLIGRAM, BID
     Route: 048
     Dates: start: 20230526, end: 20230617
  5. CAPECITABINE [Suspect]
     Active Substance: CAPECITABINE
     Dosage: 1.5 MILLIGRAM, BID
     Route: 048
     Dates: start: 20230621
  6. TRASTUZUMAB [Suspect]
     Active Substance: TRASTUZUMAB
     Indication: Adenocarcinoma gastric
     Route: 042
     Dates: start: 20230526
  7. TRASTUZUMAB [Suspect]
     Active Substance: TRASTUZUMAB
     Route: 042
     Dates: start: 20230617
  8. SHENG XUE LING [Concomitant]
     Indication: Product used for unknown indication
     Route: 065
     Dates: start: 20230528
  9. LOPERAMIDE HYDROCHLORIDE [Concomitant]
     Active Substance: LOPERAMIDE HYDROCHLORIDE
     Indication: Product used for unknown indication
     Route: 065

REACTIONS (2)
  - Anaemia [Recovering/Resolving]
  - Platelet count decreased [Recovering/Resolving]

NARRATIVE: CASE EVENT DATE: 20230617
